FAERS Safety Report 10056270 (Version 1)
Quarter: 2014Q2

REPORT INFORMATION
  Report Type: Spontaneous
  Country: US (occurrence: None)
  Receive Date: 20140403
  Receipt Date: 20140403
  Transmission Date: 20141212
  Serious: Yes (Other)
  Sender: FDA-Public Use
  Company Number: None

PATIENT
  Age: 32 Year
  Sex: Female

DRUGS (1)
  1. MIFEPRISTONE [Suspect]
     Indication: ABORTION
     Dosage: ONE PILL ONCE ORAL
     Route: 048
     Dates: start: 20140318

REACTIONS (1)
  - Drug ineffective [None]
